FAERS Safety Report 6358103-0 (Version None)
Quarter: 2009Q3

REPORT INFORMATION
  Report Type: 
  Country: None (occurrence: None)
  Receive Date: 20090911
  Receipt Date: 20090903
  Transmission Date: 20100115
  Serious: Yes (Hospitalization)
  Sender: FDA-Public Use
  Company Number: OMPQ-NO-0907S-0681

PATIENT
  Age: 66 Year
  Sex: Male

DRUGS (12)
  1. OMNIPAQUE 300 [Suspect]
     Indication: ANGINA PECTORIS
     Dosage: 90 ML, SINGLE DOSE, I.A.
     Route: 013
     Dates: start: 20090617, end: 20090617
  2. ETRETINATE (TIGASON) [Concomitant]
  3. NEORAL [Concomitant]
  4. MITINIGLIDE CALCIUM HYDRATE (GLUFAST) [Concomitant]
  5. FLUVASTATIN SODIUM (LOCHOL) [Concomitant]
  6. TAMSULOSIN HYDROCHLORIDE [Concomitant]
  7. ALLOPURINOL [Concomitant]
  8. FAMOTIDINE (GASTER D) [Concomitant]
  9. POLAPREZINC [Concomitant]
  10. ACETYLSALICYLIC ACID (BAYASPIRIN) [Concomitant]
  11. AMLODIPINE BESILATE (AMLODIN OD) [Concomitant]
  12. PLAVIX [Concomitant]

REACTIONS (8)
  - C-REACTIVE PROTEIN DECREASED [None]
  - CHILLS [None]
  - FACE OEDEMA [None]
  - GENERALISED ERYTHEMA [None]
  - PUSTULAR PSORIASIS [None]
  - PYREXIA [None]
  - RASH PUSTULAR [None]
  - WHITE BLOOD CELL COUNT DECREASED [None]
